FAERS Safety Report 18139474 (Version 1)
Quarter: 2020Q3

REPORT INFORMATION
  Report Type: Spontaneous
  Country: US (occurrence: US)
  Receive Date: 20200812
  Receipt Date: 20200812
  Transmission Date: 20201103
  Serious: Yes (Life-Threatening)
  Sender: FDA-Public Use
  Company Number: None

PATIENT
  Age: 62 Year
  Sex: Female
  Weight: 104.85 kg

DRUGS (6)
  1. SYMBICORT [Suspect]
     Active Substance: BUDESONIDE\FORMOTEROL FUMARATE DIHYDRATE
     Indication: ASTHMA
     Dosage: ?          QUANTITY:2 PUFF(S);?
     Route: 055
     Dates: start: 20200723, end: 20200730
  2. FLOVENT HFA [Concomitant]
     Active Substance: FLUTICASONE PROPIONATE
  3. ZYRTEC [Concomitant]
     Active Substance: CETIRIZINE HYDROCHLORIDE
  4. SYNTHROID [Concomitant]
     Active Substance: LEVOTHYROXINE SODIUM
  5. AEROCHAMBER [Concomitant]
     Active Substance: DEVICE
  6. CALCIUM 600 MG + VITMAIN D3 [Concomitant]

REACTIONS (9)
  - Obstructive airways disorder [None]
  - Abdominal pain upper [None]
  - Oropharyngeal pain [None]
  - Oropharyngeal oedema [None]
  - Hypersensitivity [None]
  - Laryngitis [None]
  - Flushing [None]
  - Headache [None]
  - Laryngeal oedema [None]

NARRATIVE: CASE EVENT DATE: 20200731
